FAERS Safety Report 24388444 (Version 1)
Quarter: 2024Q4

REPORT INFORMATION
  Report Type: Spontaneous
  Country: US (occurrence: None)
  Receive Date: 20241002
  Receipt Date: 20241002
  Transmission Date: 20250115
  Serious: Yes (Hospitalization)
  Sender: Public
  Company Number: None

PATIENT
  Sex: Female

DRUGS (11)
  1. HUMIRA [Suspect]
     Active Substance: ADALIMUMAB
     Indication: Psoriatic arthropathy
     Route: 058
     Dates: start: 20201009
  2. ACETAMIN TAB 500MG [Concomitant]
  3. ALBUTEROL AER HFA [Concomitant]
  4. ASPIRIN LOW TAB 81MG EC [Concomitant]
  5. ATENOLOL TAB 50MG [Concomitant]
  6. BANOPHEN CAP 50MG [Concomitant]
  7. CITALOPRAM CAP 30MG [Concomitant]
  8. CITALOPRAM TAB 10MG [Concomitant]
  9. CITALOPRAM TAB 20MG [Concomitant]
  10. CREON CAP 36000UNT [Concomitant]
  11. DEPO-MEDROL INJ 80MG/ML [Concomitant]

REACTIONS (2)
  - Gastric infection [None]
  - Intentional dose omission [None]
